FAERS Safety Report 25218859 (Version 1)
Quarter: 2025Q2

REPORT INFORMATION
  Report Type: Spontaneous
  Country: CN (occurrence: CN)
  Receive Date: 20250421
  Receipt Date: 20250421
  Transmission Date: 20250717
  Serious: Yes (Hospitalization, Other)
  Sender: STRIDES
  Company Number: CN-STRIDES ARCOLAB LIMITED-2025SP004850

PATIENT
  Age: 26 Year
  Sex: Female

DRUGS (12)
  1. PREDNISONE [Suspect]
     Active Substance: PREDNISONE
     Indication: Myasthenia gravis
     Route: 065
  2. PREDNISONE [Suspect]
     Active Substance: PREDNISONE
     Route: 065
  3. TACROLIMUS [Interacting]
     Active Substance: TACROLIMUS
     Indication: Myasthenia gravis
     Route: 065
  4. TACROLIMUS [Interacting]
     Active Substance: TACROLIMUS
     Route: 065
  5. TACROLIMUS [Interacting]
     Active Substance: TACROLIMUS
     Route: 065
  6. CEFACLOR [Concomitant]
     Active Substance: CEFACLOR
     Indication: Product used for unknown indication
     Route: 065
  7. ACETAMINOPHEN [Concomitant]
     Active Substance: ACETAMINOPHEN
     Indication: Product used for unknown indication
     Route: 065
  8. CEFTRIAXONE [Concomitant]
     Active Substance: CEFTRIAXONE
     Indication: Pyrexia
     Route: 065
  9. CEFTRIAXONE [Concomitant]
     Active Substance: CEFTRIAXONE
     Indication: Antibiotic therapy
  10. CEFTRIAXONE [Concomitant]
     Active Substance: CEFTRIAXONE
     Indication: Evidence based treatment
  11. MINOCYCLINE [Concomitant]
     Active Substance: MINOCYCLINE HYDROCHLORIDE
     Indication: Antibiotic therapy
     Route: 065
  12. MINOCYCLINE [Concomitant]
     Active Substance: MINOCYCLINE HYDROCHLORIDE
     Indication: Evidence based treatment

REACTIONS (9)
  - Drug-disease interaction [Recovered/Resolved]
  - C-reactive protein increased [Recovered/Resolved]
  - Nephropathy toxic [Recovered/Resolved]
  - Lymphopenia [Recovered/Resolved]
  - Hyperglycaemia [Recovered/Resolved]
  - Hyperuricaemia [Recovered/Resolved]
  - Pneumonia [Recovered/Resolved]
  - Toxicity to various agents [Recovered/Resolved]
  - Off label use [Unknown]
